FAERS Safety Report 18577377 (Version 4)
Quarter: 2021Q4

REPORT INFORMATION
  Report Type: Spontaneous
  Country: US (occurrence: US)
  Receive Date: 20201204
  Receipt Date: 20211001
  Transmission Date: 20220303
  Serious: Yes (Hospitalization, Other)
  Sender: FDA-Public Use
  Company Number: US-GILEAD-2020-0507120

PATIENT
  Sex: Female

DRUGS (2)
  1. VIREAD [Suspect]
     Active Substance: TENOFOVIR DISOPROXIL FUMARATE
     Indication: HIV infection
     Dosage: UNK
     Route: 048
     Dates: start: 2004
  2. TRUVADA [Suspect]
     Active Substance: EMTRICITABINE\TENOFOVIR DISOPROXIL FUMARATE
     Indication: HIV infection
     Dosage: UNK
     Route: 048
     Dates: start: 2004

REACTIONS (5)
  - Renal injury [Unknown]
  - Chronic kidney disease [Unknown]
  - Acute kidney injury [Not Recovered/Not Resolved]
  - Renal failure [Unknown]
  - Skeletal injury [Unknown]

NARRATIVE: CASE EVENT DATE: 20170101
